FAERS Safety Report 9220260 (Version 2)
Quarter: 2014Q1

REPORT INFORMATION
  Report Type: Spontaneous
  Country: US (occurrence: None)
  Receive Date: 20120831
  Receipt Date: 20130305
  Transmission Date: 20141002
  Serious: No
  Sender: FDA-Public Use
  Company Number: 1000031492

PATIENT
  Age: 54 Year
  Sex: Female

DRUGS (10)
  1. DALIRESP [Suspect]
     Indication: CHRONIC OBSTRUCTIVE PULMONARY DISEASE
     Dates: start: 201112, end: 201112
  2. XOLAIR (OMALIZUMAB) [Concomitant]
  3. SYMBICORT (BUDESONIDE, FORMOTEROL FUMARATE) [Concomitant]
  4. SPIRIVA (TIOTROPIUM BROMIDE) [Concomitant]
  5. PREVACID (LANSOPRAZOLE) [Concomitant]
  6. ZANTAC (RANITIDINE HYDROCHLORIDE) [Concomitant]
  7. COMBIVENT 9ALBUTEROL, IPRATROPIUM) [Concomitant]
  8. SINGULAIR (MONTELUKAST SODIUM) TABLET [Concomitant]
  9. DIOVAN (VALSARTAN) [Concomitant]
  10. ZOLOFT (SERTRALINE HYDROCHLORIDE) [Concomitant]

REACTIONS (4)
  - Nausea [None]
  - Vomiting [None]
  - Diarrhoea [None]
  - Weight decreased [None]
